FAERS Safety Report 16624352 (Version 1)
Quarter: 2019Q3

REPORT INFORMATION
  Report Type: Report from Study
  Country: CM (occurrence: CM)
  Receive Date: 20190724
  Receipt Date: 20190724
  Transmission Date: 20191004
  Serious: Yes (Other)
  Sender: FDA-Public Use
  Company Number: CM-SUN PHARMACEUTICAL INDUSTRIES LTD-2019R1-213993

PATIENT
  Sex: Male

DRUGS (2)
  1. DEXAMETHASONE. [Suspect]
     Active Substance: DEXAMETHASONE
     Indication: PRODUCT USED FOR UNKNOWN INDICATION
     Dosage: UNK
     Route: 030
  2. DICLOFENAC [Suspect]
     Active Substance: DICLOFENAC
     Route: 030

REACTIONS (1)
  - Embolia cutis medicamentosa [Unknown]
